FAERS Safety Report 7237736-3 (Version None)
Quarter: 2011Q1

REPORT INFORMATION
  Report Type: 
  Country: None (occurrence: None)
  Receive Date: 20110121
  Receipt Date: 20110112
  Transmission Date: 20110831
  Serious: Yes (Hospitalization, Other)
  Sender: FDA-Public Use
  Company Number: US-BAXTER-2010BH030735

PATIENT
  Sex: Female

DRUGS (4)
  1. DIANEAL [Suspect]
     Indication: PERITONEAL DIALYSIS
     Route: 033
     Dates: start: 20101217, end: 20101201
  2. DIANEAL [Suspect]
     Route: 033
     Dates: start: 20101217, end: 20101201
  3. DIANEAL [Suspect]
     Route: 033
     Dates: start: 20101201
  4. DIANEAL [Suspect]
     Route: 033
     Dates: start: 20101201

REACTIONS (10)
  - PERITONITIS [None]
  - MALAISE [None]
  - FLUID OVERLOAD [None]
  - CARDIAC DISORDER [None]
  - ASTHENIA [None]
  - HYPOTENSION [None]
  - PERITONEAL DIALYSIS COMPLICATION [None]
  - HYPERGLYCAEMIA [None]
  - NAUSEA [None]
  - DRUG ADMINISTRATION ERROR [None]
